FAERS Safety Report 20785194 (Version 1)
Quarter: 2022Q2

REPORT INFORMATION
  Report Type: Spontaneous
  Country: US (occurrence: None)
  Receive Date: 20220504
  Receipt Date: 20220504
  Transmission Date: 20220720
  Serious: Yes (Hospitalization)
  Sender: FDA-Public Use
  Company Number: None

PATIENT
  Sex: Male

DRUGS (3)
  1. SPRYCEL [Suspect]
     Active Substance: DASATINIB
     Indication: Acute lymphocytic leukaemia
     Dosage: ONCE A DAY AT BEDTIME
     Route: 048
     Dates: start: 20220111
  2. LOVENOX [Concomitant]
  3. ONDANSETRON [Concomitant]
     Active Substance: ONDANSETRON

REACTIONS (8)
  - Hypervolaemia [None]
  - Pulmonary oedema [None]
  - Generalised oedema [None]
  - Weight decreased [None]
  - Localised infection [None]
  - Fatigue [None]
  - Hyperhidrosis [None]
  - Rhinorrhoea [None]
